FAERS Safety Report 5277997-3 (Version None)
Quarter: 2007Q1

REPORT INFORMATION
  Report Type: 
  Country: None (occurrence: None)
  Receive Date: 20070321
  Receipt Date: 20070306
  Transmission Date: 20070707
  Serious: Yes (Other)
  Sender: FDA-Public Use
  Company Number: S07-FRA-01180-01

PATIENT
  Age: 63 Year
  Sex: Male

DRUGS (4)
  1. SEROPLEX (ESCITALOPRAM) [Suspect]
     Dosage: 10 MG QD PO
     Route: 048
     Dates: start: 20060101
  2. OLANZAPINE [Concomitant]
  3. DEPAKOTE [Concomitant]
  4. ANTIVIRALS (THREE OTHER) [Concomitant]

REACTIONS (1)
  - VISUAL FIELD DEFECT [None]
